FAERS Safety Report 12425897 (Version 1)
Quarter: 2016Q2

REPORT INFORMATION
  Report Type: Spontaneous
  Country: US (occurrence: US)
  Receive Date: 20160601
  Receipt Date: 20160601
  Transmission Date: 20160815
  Serious: Yes (Hospitalization)
  Sender: FDA-Public Use
  Company Number: US-LPDUSPRD-20160456

PATIENT
  Age: 41 Year
  Sex: Female

DRUGS (1)
  1. INJECTAFER [Suspect]
     Active Substance: FERRIC CARBOXYMALTOSE
     Dosage: 750 MG
     Route: 065
     Dates: start: 20160505

REACTIONS (4)
  - Pyrexia [Unknown]
  - Hepatic enzyme increased [Unknown]
  - Migraine [Unknown]
  - Myalgia [Unknown]

NARRATIVE: CASE EVENT DATE: 20160507
